FAERS Safety Report 8368427-3 (Version None)
Quarter: 2012Q2

REPORT INFORMATION
  Report Type: 
  Country: None (occurrence: None)
  Receive Date: 20120517
  Receipt Date: 20120508
  Transmission Date: 20120825
  Serious: Yes (Other)
  Sender: FDA-Public Use
  Company Number: US-ELI_LILLY_AND_COMPANY-US201107006538

PATIENT
  Sex: Male
  Weight: 54.4 kg

DRUGS (6)
  1. FORTEO [Suspect]
     Dosage: 20 UG, QD
  2. FORTEO [Suspect]
     Dosage: 20 UG, QD
  3. FORTEO [Suspect]
     Dosage: 20 UG, QD
  4. FORTEO [Suspect]
     Dosage: 20 UG, QD
  5. FORTEO [Suspect]
     Indication: OSTEOPOROSIS
     Dosage: 20 UG, QD
     Dates: start: 20110101
  6. PRILOSEC [Concomitant]

REACTIONS (16)
  - GAIT DISTURBANCE [None]
  - CONSTIPATION [None]
  - INJECTION SITE PAIN [None]
  - BACK PAIN [None]
  - ADVERSE EVENT [None]
  - DRUG DOSE OMISSION [None]
  - MUSCULOSKELETAL DISORDER [None]
  - MUSCULOSKELETAL DISCOMFORT [None]
  - MUSCULAR WEAKNESS [None]
  - INCORRECT DOSE ADMINISTERED [None]
  - JOINT INJURY [None]
  - MUSCULOSKELETAL PAIN [None]
  - FALL [None]
  - INJECTION SITE HAEMORRHAGE [None]
  - POLIOMYELITIS [None]
  - DISCOMFORT [None]
